FAERS Safety Report 8227891-0 (Version None)
Quarter: 2012Q1

REPORT INFORMATION
  Report Type: 
  Country: None (occurrence: None)
  Receive Date: 20120322
  Receipt Date: 20120315
  Transmission Date: 20120608
  Serious: Yes (Other)
  Sender: FDA-Public Use
  Company Number: FR-PFIZER INC-2012069039

PATIENT
  Sex: Female

DRUGS (1)
  1. EFFEXOR [Suspect]
     Route: 064

REACTIONS (6)
  - POOR QUALITY SLEEP [None]
  - PSYCHOMOTOR HYPERACTIVITY [None]
  - DISTURBANCE IN ATTENTION [None]
  - MATERNAL EXPOSURE TIMING UNSPECIFIED [None]
  - RESTLESSNESS [None]
  - DEVELOPMENTAL DELAY [None]
